FAERS Safety Report 24280971 (Version 1)
Quarter: 2024Q3

REPORT INFORMATION
  Report Type: Spontaneous
  Country: JP (occurrence: JP)
  Receive Date: 20240904
  Receipt Date: 20240904
  Transmission Date: 20241017
  Serious: Yes (Other)
  Sender: MACLEODS
  Company Number: JP-MLMSERVICE-20240815-PI163563-00106-1

PATIENT

DRUGS (1)
  1. CLOPIDOGREL [Suspect]
     Active Substance: CLOPIDOGREL BISULFATE
     Indication: Anticoagulant therapy
     Route: 065

REACTIONS (2)
  - Subdural haematoma [Recovered/Resolved]
  - Cerebral haemorrhage [Recovered/Resolved]
